FAERS Safety Report 5319985-4 (Version None)
Quarter: 2007Q1

REPORT INFORMATION
  Report Type: 
  Country: None (occurrence: None)
  Receive Date: 20070201
  Receipt Date: 20060508
  Transmission Date: 20070707
  Serious: Yes (Hospitalization, Other)
  Sender: FDA-Public Use
  Company Number: 2006BH009347

PATIENT
  Sex: Female

DRUGS (1)
  1. DIANEAL PD4, ULTRABAG CONTAINER [Suspect]
     Indication: DIALYSIS
     Dosage: 2 L; IP
     Route: 033

REACTIONS (1)
  - PERITONITIS [None]
